FAERS Safety Report 9919313 (Version 1)
Quarter: 2014Q1

REPORT INFORMATION
  Report Type: Report from Study
  Country: RU (occurrence: RU)
  Receive Date: 20140224
  Receipt Date: 20140224
  Transmission Date: 20141002
  Serious: Yes (Other)
  Sender: FDA-Public Use
  Company Number: RU-US-EMD SERONO, INC.-7254413

PATIENT
  Sex: Female
  Weight: 72 kg

DRUGS (3)
  1. CETROTIDE (CETRORELIX ACETATE FOR INJECTION) [Suspect]
     Indication: OVULATION INDUCTION
     Dosage: TOTAL OF 1000 MCG PER CYCLE WAS STARTED ON 6TH CYCLE DAY
  2. PUREGON                            /01348901/ [Concomitant]
     Indication: OVULATION INDUCTION
     Dosage: DOSE FOR A SINGLE ADMINISTRATION 150 IU, TOTALLY 1200 IU PER CYCLE, STARTED ON 5TH CYCLE DAY,
  3. DECAPEPTYL                         /00486501/ [Concomitant]
     Indication: OVULATION INDUCTION
     Dosage: 1MG PER CYCLE STARTED AT 13TH DAY

REACTIONS (1)
  - Haemorrhage [Unknown]
